FAERS Safety Report 7584247-1 (Version None)
Quarter: 2011Q2

REPORT INFORMATION
  Report Type: 
  Country: None (occurrence: None)
  Receive Date: 20110630
  Receipt Date: 20110624
  Transmission Date: 20111010
  Serious: Yes (Hospitalization)
  Sender: FDA-Public Use
  Company Number: US-ELI_LILLY_AND_COMPANY-US201106002255

PATIENT
  Age: 55 Year
  Sex: Female
  Weight: 51.247 kg

DRUGS (15)
  1. ADCIRCA [Suspect]
     Dosage: 20 MG, QD
     Dates: end: 20110214
  2. REMODULIN [Concomitant]
     Indication: COR PULMONALE CHRONIC
     Dosage: UNK
     Route: 058
     Dates: start: 20110302
  3. ADVAIR DISKUS 100/50 [Concomitant]
  4. HYDROCHLOROTHIAZIDE [Concomitant]
  5. OXYGEN [Concomitant]
     Dosage: UNK
  6. LISINOPRIL [Concomitant]
  7. METOPROLOL TARTRATE [Concomitant]
  8. ADCIRCA [Suspect]
     Indication: PULMONARY ARTERIAL HYPERTENSION
     Dosage: 40 MG, QD
     Route: 048
     Dates: start: 20101216
  9. DIURETICS [Concomitant]
  10. HYDRALAZINE HCL [Concomitant]
  11. EMTRIVA [Concomitant]
  12. LISINOPRIL [Concomitant]
  13. DIGOXIN [Concomitant]
  14. REYATAZ [Concomitant]
  15. ADENOSINE [Concomitant]

REACTIONS (1)
  - OEDEMA PERIPHERAL [None]
